FAERS Safety Report 6114388-7 (Version None)
Quarter: 2009Q1

REPORT INFORMATION
  Report Type: 
  Country: None (occurrence: None)
  Receive Date: 20090313
  Receipt Date: 20090311
  Transmission Date: 20090719
  Serious: Yes (Death)
  Sender: FDA-Public Use
  Company Number: JAOCAN2000000367

PATIENT
  Age: 17 Year
  Sex: Male

DRUGS (2)
  1. DURAGESIC-100 [Suspect]
     Indication: DRUG ABUSE
     Route: 062
     Dates: start: 19990101
  2. MARIJUANA [Concomitant]
     Route: 065

REACTIONS (1)
  - DRUG ABUSE [None]
